FAERS Safety Report 6610598-0 (Version None)
Quarter: 2010Q1

REPORT INFORMATION
  Report Type: 
  Country: None (occurrence: None)
  Receive Date: 20100302
  Receipt Date: 20100218
  Transmission Date: 20100710
  Serious: Yes (Other)
  Sender: FDA-Public Use
  Company Number: US-PFIZER INC-2010025807

PATIENT
  Sex: Female
  Weight: 72.574 kg

DRUGS (3)
  1. GABAPENTIN [Suspect]
     Indication: NEURALGIA
     Dosage: 300 MG, 1X/DAY
     Dates: start: 20091210
  2. ROBAXIN [Concomitant]
     Dosage: 50 MG, UNK
  3. ELAVIL [Concomitant]
     Dosage: 25 MG, UNK

REACTIONS (3)
  - ASTHENOPIA [None]
  - NEURALGIA [None]
  - VISUAL IMPAIRMENT [None]
